FAERS Safety Report 24399081 (Version 1)
Quarter: 2024Q4

REPORT INFORMATION
  Report Type: Spontaneous
  Country: GB (occurrence: GB)
  Receive Date: 20241004
  Receipt Date: 20241004
  Transmission Date: 20250114
  Serious: Yes (Other)
  Sender: MYLAN
  Company Number: GB-MHRA-TPP33616193C10132074YC1727433812640

PATIENT
  Age: 65 Year
  Sex: Male
  Weight: 78 kg

DRUGS (8)
  1. CITALOPRAM [Suspect]
     Active Substance: CITALOPRAM
     Indication: Ill-defined disorder
     Dosage: UNK
     Route: 065
     Dates: start: 20240127
  2. FLUOXETINE [Concomitant]
     Active Substance: FLUOXETINE HYDROCHLORIDE
     Indication: Ill-defined disorder
     Dosage: 1 DOSAGE FORM, AM (ONE CAPSULE TO BE TAKEN IN THE MORNING TO RAISE MOOD)
     Route: 065
     Dates: start: 20240905
  3. FLUOXETINE [Concomitant]
     Active Substance: FLUOXETINE HYDROCHLORIDE
     Indication: Depressed mood
  4. LANSOPRAZOLE [Concomitant]
     Active Substance: LANSOPRAZOLE
     Indication: Ill-defined disorder
     Dosage: 1 DOSAGE FORM, QD (ONE CAPSULE TO BE TAKEN ONCE A DAY)
     Route: 065
     Dates: start: 20240807, end: 20240904
  5. ATORVASTATIN [Concomitant]
     Active Substance: ATORVASTATIN
     Indication: Ill-defined disorder
     Dosage: 1 DOSAGE FORM, QD (ONE TABLET TO BE TAKEN DAILY TO LOWER CHOLESTER)
     Route: 065
     Dates: start: 20230922
  6. ATORVASTATIN [Concomitant]
     Active Substance: ATORVASTATIN
     Indication: Blood cholesterol increased
  7. CLOPIDOGREL [Concomitant]
     Active Substance: CLOPIDOGREL BISULFATE
     Indication: Ill-defined disorder
     Dosage: 1 DOSAGE FORM, QD (TAKE ONE ONCE DAILY TO HELP PREVENT A HEART ATT)
     Route: 065
     Dates: start: 20230922
  8. CLOPIDOGREL [Concomitant]
     Active Substance: CLOPIDOGREL BISULFATE
     Indication: Ischaemic heart disease prophylaxis

REACTIONS (1)
  - Loss of consciousness [Recovered/Resolved]

NARRATIVE: CASE EVENT DATE: 20240227
